FAERS Safety Report 19627549 (Version 2)
Quarter: 2021Q3

REPORT INFORMATION
  Report Type: Report from Study
  Country: GB (occurrence: GB)
  Receive Date: 20210729
  Receipt Date: 20210810
  Transmission Date: 20211014
  Serious: Yes (Hospitalization, Other)
  Sender: FDA-Public Use
  Company Number: GB-BIO PRODUCTS LABORATORY LTD-2114411

PATIENT
  Age: 54 Year
  Sex: Female
  Weight: 76.19 kg

DRUGS (3)
  1. HUMAN NORMAL IMMUNOGLOBULIN;?INDICATION: ITP [Suspect]
     Active Substance: HUMAN IMMUNOGLOBULIN G
     Route: 042
  2. HUMAN NORMAL IMMUNOGLOBULIN [Suspect]
     Active Substance: HUMAN IMMUNOGLOBULIN G
     Indication: IMMUNE THROMBOCYTOPENIA
     Route: 042
     Dates: start: 20041222, end: 20041225
  3. ANTI D [HUMAN RHO(D) IMMUNE GLOBULIN] [Suspect]
     Active Substance: HUMAN RHO(D) IMMUNE GLOBULIN

REACTIONS (6)
  - Headache [Recovered/Resolved]
  - Syncope [Unknown]
  - Meningism [Recovered/Resolved]
  - Pyrexia [Unknown]
  - No adverse event [Unknown]
  - Product use in unapproved indication [Unknown]

NARRATIVE: CASE EVENT DATE: 20041222
